FAERS Safety Report 8989965 (Version 3)
Quarter: 2013Q2

REPORT INFORMATION
  Report Type: Spontaneous
  Country: US (occurrence: US)
  Receive Date: 20121228
  Receipt Date: 20130430
  Transmission Date: 20140414
  Serious: Yes (Hospitalization)
  Sender: FDA-Public Use
  Company Number: US-ELI_LILLY_AND_COMPANY-US201212006417

PATIENT
  Age: 80 Year
  Sex: Female

DRUGS (4)
  1. FORTEO [Suspect]
     Indication: OSTEOPOROSIS
     Dosage: 20 UG, QD
     Dates: start: 201207
  2. FORTEO [Suspect]
     Dosage: 20 UG, QD
  3. COUMADIN [Concomitant]
  4. PREDNISONE [Concomitant]

REACTIONS (10)
  - Sepsis [Unknown]
  - Urinary tract infection [Unknown]
  - Blood blister [Unknown]
  - Laceration [Unknown]
  - Contusion [Unknown]
  - Injection site bruising [Unknown]
  - Asthenia [Unknown]
  - Blood glucose decreased [Unknown]
  - Fear [Unknown]
  - Medication error [Unknown]
